FAERS Safety Report 25764260 (Version 1)
Quarter: 2025Q3

REPORT INFORMATION
  Report Type: Spontaneous
  Country: US (occurrence: US)
  Receive Date: 20250905
  Receipt Date: 20250905
  Transmission Date: 20251020
  Serious: No
  Sender: DOMPE FARMACEUTICI
  Company Number: US-FARMAPROD-202412-4279

PATIENT
  Sex: Female

DRUGS (23)
  1. OXERVATE [Suspect]
     Active Substance: CENEGERMIN-BKBJ
     Indication: Neurotrophic keratopathy
     Route: 047
     Dates: start: 20240927
  2. OXERVATE [Suspect]
     Active Substance: CENEGERMIN-BKBJ
     Route: 047
     Dates: start: 20241210
  3. HERBALS [Concomitant]
     Active Substance: HERBALS
  4. ZINC [Concomitant]
     Active Substance: ZINC
  5. VITAMIN C [Concomitant]
     Active Substance: ASCORBIC ACID
  6. HERBALS\TURMERIC [Concomitant]
     Active Substance: HERBALS\TURMERIC
  7. VITAMINS [Concomitant]
     Active Substance: VITAMINS
  8. UNISOM SLEEPTABS [Concomitant]
     Active Substance: DOXYLAMINE SUCCINATE
  9. 5-HTP [Concomitant]
  10. MAGNESIUM [Concomitant]
     Active Substance: MAGNESIUM
  11. LEVOCARNITINE [Concomitant]
     Active Substance: LEVOCARNITINE
  12. MINERALS\VITAMINS [Concomitant]
     Active Substance: MINERALS\VITAMINS
  13. FISH OIL [Concomitant]
     Active Substance: FISH OIL
  14. PROBIOTIC 1B CELL [Concomitant]
  15. COENZYME Q10 [Concomitant]
     Active Substance: DIETARY SUPPLEMENT\UBIDECARENONE
  16. GINKGO [Concomitant]
     Active Substance: GINKGO
  17. VITAMIN D3 [Concomitant]
     Active Substance: CHOLECALCIFEROL
  18. VITAMIN B COMPLEX [Concomitant]
     Active Substance: CYANOCOBALAMIN\DEXPANTHENOL\NIACINAMIDE\PYRIDOXINE HYDROCHLORIDE\RIBOFLAVIN 5^-PHOSPHATE SODIUM\THIA
  19. MURO-128 [Concomitant]
  20. MIEBO [Concomitant]
     Active Substance: PERFLUOROHEXYLOCTANE
  21. ACYCLOVIR [Concomitant]
     Active Substance: ACYCLOVIR
  22. OMEPRAZOLE [Concomitant]
     Active Substance: OMEPRAZOLE
  23. IMITREX [Concomitant]
     Active Substance: SUMATRIPTAN SUCCINATE

REACTIONS (2)
  - Eye pain [Not Recovered/Not Resolved]
  - Sinusitis [Not Recovered/Not Resolved]
